FAERS Safety Report 14759238 (Version 6)
Quarter: 2023Q1

REPORT INFORMATION
  Report Type: Spontaneous
  Country: US (occurrence: None)
  Receive Date: 20180413
  Receipt Date: 20230131
  Transmission Date: 20230418
  Serious: Yes (Other)
  Sender: FDA-Public Use
  Company Number: 2018SE44345

PATIENT
  Sex: Male
  Weight: 150.6 kg

DRUGS (40)
  1. NEXIUM [Suspect]
     Active Substance: ESOMEPRAZOLE MAGNESIUM
     Indication: Gastrooesophageal reflux disease
     Route: 048
     Dates: start: 198909, end: 201712
  2. NEXIUM [Suspect]
     Active Substance: ESOMEPRAZOLE MAGNESIUM
     Indication: Gastrooesophageal reflux disease
     Route: 048
     Dates: start: 20081104
  3. NEXIUM [Suspect]
     Active Substance: ESOMEPRAZOLE MAGNESIUM
     Indication: Gastrooesophageal reflux disease
     Route: 048
     Dates: start: 198909, end: 201712
  4. NEXIUM 24HR [Suspect]
     Active Substance: ESOMEPRAZOLE MAGNESIUM
     Route: 048
     Dates: start: 201404, end: 201612
  5. NEXIUM 24HR [Suspect]
     Active Substance: ESOMEPRAZOLE MAGNESIUM
     Route: 048
     Dates: start: 198909, end: 201712
  6. PRILOSEC [Suspect]
     Active Substance: OMEPRAZOLE MAGNESIUM
     Indication: Gastrooesophageal reflux disease
     Route: 048
     Dates: start: 201005, end: 201006
  7. PRILOSEC [Suspect]
     Active Substance: OMEPRAZOLE MAGNESIUM
     Indication: Gastrooesophageal reflux disease
     Route: 048
     Dates: start: 20100526
  8. PRILOSEC [Suspect]
     Active Substance: OMEPRAZOLE MAGNESIUM
     Indication: Gastrooesophageal reflux disease
     Route: 048
     Dates: start: 198909, end: 201712
  9. PRILOSEC OTC [Suspect]
     Active Substance: OMEPRAZOLE MAGNESIUM
     Indication: Gastrooesophageal reflux disease
     Route: 048
  10. PRILOSEC OTC [Suspect]
     Active Substance: OMEPRAZOLE MAGNESIUM
     Indication: Gastrooesophageal reflux disease
     Route: 048
     Dates: start: 198909, end: 201712
  11. DEXILANT [Suspect]
     Active Substance: DEXLANSOPRAZOLE
     Route: 065
     Dates: start: 198909, end: 201712
  12. PREVACID [Suspect]
     Active Substance: LANSOPRAZOLE
     Indication: Gastrooesophageal reflux disease
     Route: 065
     Dates: start: 198909, end: 201712
  13. PREVACID [Suspect]
     Active Substance: LANSOPRAZOLE
     Indication: Gastrooesophageal reflux disease
     Route: 065
     Dates: start: 20020910, end: 20020910
  14. PREVACID [Suspect]
     Active Substance: LANSOPRAZOLE
     Indication: Gastrooesophageal reflux disease
     Route: 065
     Dates: start: 20011106, end: 20100906
  15. PREVACID 24 HR [Suspect]
     Active Substance: LANSOPRAZOLE
     Route: 065
     Dates: start: 198909, end: 201712
  16. PROTONIX [Suspect]
     Active Substance: PANTOPRAZOLE SODIUM
     Route: 065
     Dates: start: 198909, end: 201712
  17. ATIVAN [Concomitant]
     Active Substance: LORAZEPAM
     Route: 065
  18. GLIMEPIRIDE [Concomitant]
     Active Substance: GLIMEPIRIDE
     Route: 065
  19. LIPITOR [Concomitant]
     Active Substance: ATORVASTATIN CALCIUM
     Route: 065
  20. ISOSORBIDE MONONITRATE [Concomitant]
     Active Substance: ISOSORBIDE MONONITRATE
     Route: 065
  21. LORTAB [Concomitant]
     Active Substance: ACETAMINOPHEN\HYDROCODONE BITARTRATE
     Route: 065
  22. METOPROLOL TARTRATE [Concomitant]
     Active Substance: METOPROLOL TARTRATE
     Route: 065
  23. NITROSTAT [Concomitant]
     Active Substance: NITROGLYCERIN
     Route: 065
  24. PROVENTIL HFA [Concomitant]
     Active Substance: ALBUTEROL SULFATE
     Route: 065
  25. TIZANIDINE [Concomitant]
     Active Substance: TIZANIDINE
     Route: 065
  26. ZITHROMAX [Concomitant]
     Active Substance: AZITHROMYCIN DIHYDRATE
     Route: 065
  27. CELEXA [Concomitant]
     Active Substance: CITALOPRAM HYDROBROMIDE
  28. GLYBURIDE [Concomitant]
     Active Substance: GLYBURIDE
  29. ASPIRIN [Concomitant]
     Active Substance: ASPIRIN
  30. K-DUR [Concomitant]
     Active Substance: POTASSIUM CHLORIDE
  31. LASIX [Concomitant]
     Active Substance: FUROSEMIDE
  32. ROCALTROL [Concomitant]
     Active Substance: CALCITRIOL
  33. PLAVIX [Concomitant]
     Active Substance: CLOPIDOGREL BISULFATE
  34. ACTOS [Concomitant]
     Active Substance: PIOGLITAZONE HYDROCHLORIDE
  35. NEURONTIN [Concomitant]
     Active Substance: GABAPENTIN
  36. LOVAZA [Concomitant]
     Active Substance: OMEGA-3-ACID ETHYL ESTERS
  37. TOPROL XL [Concomitant]
     Active Substance: METOPROLOL SUCCINATE
  38. SYMBICORT [Concomitant]
     Active Substance: BUDESONIDE\FORMOTEROL FUMARATE DIHYDRATE
  39. ALBUTEROL [Concomitant]
     Active Substance: ALBUTEROL
  40. VITAMIN B12` [Concomitant]

REACTIONS (4)
  - Chronic kidney disease [Unknown]
  - End stage renal disease [Not Recovered/Not Resolved]
  - Renal injury [Unknown]
  - Renal failure [Unknown]
